FAERS Safety Report 15825554 (Version 1)
Quarter: 2019Q1

REPORT INFORMATION
  Report Type: Spontaneous
  Country: IT (occurrence: IT)
  Receive Date: 20190115
  Receipt Date: 20190115
  Transmission Date: 20190417
  Serious: Yes (Other)
  Sender: FDA-Public Use
  Company Number: IT-ELI_LILLY_AND_COMPANY-IT201901005004

PATIENT
  Age: 77 Year
  Sex: Female

DRUGS (1)
  1. FORSTEO 250UG/ML [Suspect]
     Active Substance: TERIPARATIDE
     Indication: OSTEOPOROSIS
     Dosage: UNK, UNKNOWN
     Route: 065
     Dates: start: 201802, end: 20190109

REACTIONS (6)
  - Haemodynamic instability [Unknown]
  - Arrhythmia [Unknown]
  - Dyspnoea [Unknown]
  - Vein disorder [Unknown]
  - Mitral valve incompetence [Unknown]
  - Chordae tendinae rupture [Unknown]

NARRATIVE: CASE EVENT DATE: 201811
